FAERS Safety Report 8232322 (Version 6)
Quarter: 2013Q2

REPORT INFORMATION
  Report Type: Spontaneous
  Country: US (occurrence: US)
  Receive Date: 20111107
  Receipt Date: 20130418
  Transmission Date: 20140414
  Serious: Yes (Hospitalization, Other)
  Sender: FDA-Public Use
  Company Number: US-JNJFOC-20111011927

PATIENT
  Sex: Female
  Weight: 53.07 kg

DRUGS (11)
  1. LISTERINE WHITENING PLUS RESTORING FLUORIDE RINSE CLEAN MINT [Suspect]
     Indication: BREATH ODOUR
     Dosage: NO MORE THAN A MOUTHFUL ONE TIME AFTER BREAKFAST IN THE AM.
     Route: 048
     Dates: end: 20110330
  2. LISTERINE WHITENING PLUS RESTORING FLUORIDE RINSE CLEAN MINT [Suspect]
     Indication: DENTAL DISORDER PROPHYLAXIS
     Dosage: NO MORE THAN A MOUTHFUL ONE TIME AFTER BREAKFAST IN THE AM.
     Route: 048
     Dates: end: 20110330
  3. PRADAXA [Concomitant]
     Indication: ANTICOAGULANT THERAPY
     Route: 065
  4. LISINOPRIL [Concomitant]
     Indication: PRODUCT USED FOR UNKNOWN INDICATION
     Route: 065
  5. ALL OTHER THERAPEUTIC PRODUCTS [Concomitant]
     Indication: MUSCLE SPASMS
     Route: 065
  6. GLYBURIDE [Concomitant]
     Route: 065
  7. ASPIRIN [Concomitant]
  8. DIGOXIN [Concomitant]
     Route: 065
  9. PROTONIX [Concomitant]
     Indication: GASTROINTESTINAL DISORDER
     Route: 065
  10. UNKNOWN MEDICATION [Concomitant]
     Indication: ANTICHOLINERGIC SYNDROME
     Route: 065
  11. DILTIAZEM [Concomitant]
     Indication: CARDIOVASCULAR DISORDER
     Route: 065

REACTIONS (9)
  - Loss of consciousness [Not Recovered/Not Resolved]
  - Gingival pain [Not Recovered/Not Resolved]
  - Hypoaesthesia oral [Not Recovered/Not Resolved]
  - Atrial fibrillation [Not Recovered/Not Resolved]
  - Blood glucose decreased [Not Recovered/Not Resolved]
  - Incorrect dose administered [Recovered/Resolved]
  - Mastication disorder [Not Recovered/Not Resolved]
  - Toothache [Not Recovered/Not Resolved]
  - Oral pain [Not Recovered/Not Resolved]
